FAERS Safety Report 10084424 (Version 3)
Quarter: 2014Q2

REPORT INFORMATION
  Report Type: Spontaneous
  Country: US (occurrence: US)
  Receive Date: 20140417
  Receipt Date: 20140527
  Transmission Date: 20141212
  Serious: Yes (Hospitalization)
  Sender: FDA-Public Use
  Company Number: US-JNJFOC-20140408927

PATIENT
  Age: 76 Year
  Sex: Male
  Weight: 106.6 kg

DRUGS (11)
  1. XARELTO [Suspect]
     Indication: CEREBROVASCULAR ACCIDENT PROPHYLAXIS
     Dosage: NDC: 50458-579-30
     Route: 048
     Dates: start: 20140120, end: 20140308
  2. XARELTO [Suspect]
     Indication: ATRIAL FIBRILLATION
     Dosage: NDC: 50458-579-30
     Route: 048
     Dates: start: 20140120, end: 20140308
  3. ASPIRIN [Suspect]
     Indication: PRODUCT USED FOR UNKNOWN INDICATION
     Dosage: MORNING
     Route: 065
  4. DOXYCYCLINE [Concomitant]
     Indication: ROSACEA
     Dosage: MORNING
     Route: 048
     Dates: start: 1982
  5. RAMIPRIL [Concomitant]
     Indication: BLOOD PRESSURE ABNORMAL
     Dosage: MORNING
     Route: 048
     Dates: start: 1995, end: 20140324
  6. DILTIAZEM [Concomitant]
     Indication: BLOOD PRESSURE ABNORMAL
     Dosage: MORNING
     Route: 048
     Dates: start: 2011
  7. WELCHOL [Concomitant]
     Indication: BLOOD CHOLESTEROL ABNORMAL
     Dosage: MORNING
     Route: 048
     Dates: start: 201308
  8. COQ10 [Concomitant]
     Dosage: MORNING
     Route: 065
  9. MULTIVITAMINS [Concomitant]
     Dosage: DOSE 1??MORNING
     Route: 048
  10. PRADAXA [Concomitant]
     Dosage: MORNING AND EVENING
     Route: 065
  11. TYLENOL [Concomitant]
     Dosage: BEDTIME
     Route: 065

REACTIONS (4)
  - Gingival bleeding [Recovered/Resolved]
  - Anal haemorrhage [Recovered/Resolved]
  - Haematocrit decreased [Recovered/Resolved]
  - Blood pressure decreased [Recovered/Resolved]
